FAERS Safety Report 4991315-7 (Version None)
Quarter: 2006Q2

REPORT INFORMATION
  Report Type: 
  Country: None (occurrence: None)
  Receive Date: 20060428
  Receipt Date: 20060418
  Transmission Date: 20061013
  Serious: Yes (Hospitalization)
  Sender: FDA-Public Use
  Company Number: 2005BI022492

PATIENT
  Age: 50 Year
  Sex: Female
  Weight: 68.0396 kg

DRUGS (3)
  1. AVONEX [Suspect]
     Indication: MULTIPLE SCLEROSIS
     Dosage: 30 UG;QW;IM
     Route: 030
     Dates: start: 19991203, end: 20030825
  2. AVONEX [Suspect]
     Indication: MULTIPLE SCLEROSIS
     Dosage: 30 UG;QW;IM
     Route: 030
     Dates: start: 20030901, end: 20051114
  3. AVONEX [Suspect]
     Indication: MULTIPLE SCLEROSIS
     Dosage: 30 UG;QW;IM
     Route: 030
     Dates: start: 20060201

REACTIONS (10)
  - CONDITION AGGRAVATED [None]
  - ENTEROCOCCAL BACTERAEMIA [None]
  - IATROGENIC INJURY [None]
  - INTERVERTEBRAL DISC DISORDER [None]
  - KYPHOSCOLIOSIS [None]
  - MULTIPLE SCLEROSIS [None]
  - NERVE ROOT INJURY LUMBAR [None]
  - POSTOPERATIVE WOUND INFECTION [None]
  - SCOLIOSIS [None]
  - WALKING AID USER [None]
